FAERS Safety Report 7178483-6 (Version None)
Quarter: 2010Q4

REPORT INFORMATION
  Report Type: 
  Country: None (occurrence: None)
  Receive Date: 20101220
  Receipt Date: 20101210
  Transmission Date: 20110411
  Serious: Yes (Other)
  Sender: FDA-Public Use
  Company Number: US-AMGEN-KDL439776

PATIENT

DRUGS (14)
  1. PROCRIT [Suspect]
     Indication: ANAEMIA
     Dosage: 40000 IU, UNK
     Route: 058
  2. ACETAMINOPHEN/DEXTROMETHORPHAN HBR/PSEUDOEPHEDRINE HCL [Concomitant]
  3. RIBAVIRIN [Concomitant]
     Dosage: UNK UNK, UNK
     Dates: start: 20100401
  4. AMITRIPTYLINE [Concomitant]
     Dosage: 50 MG, UNK
  5. PEGYLATED INTERFERON ALFA-2B [Concomitant]
     Dosage: UNK UNK, UNK
     Dates: start: 20100401
  6. RANITIDINE HYDROCHLORIDE [Concomitant]
  7. LANSOPRAZOLE [Concomitant]
  8. SERTRALINE HYDROCHLORIDE [Concomitant]
     Dosage: 100 MG, UNK
     Dates: start: 20100901
  9. TRAZODONE HCL [Concomitant]
     Dosage: 100 MG, PRN
  10. NAPROXEN [Concomitant]
     Dosage: UNK UNK, PRN
  11. ACETAMINOPHEN [Concomitant]
     Dosage: UNK UNK, PRN
  12. MEDINITE [Concomitant]
     Dosage: UNK UNK, UNK
  13. MAALOX [Concomitant]
     Dosage: UNK UNK, UNK
  14. LIDOCAINE HCL VISCOUS [Concomitant]
     Dosage: 2 %, UNK

REACTIONS (14)
  - ABDOMINAL PAIN UPPER [None]
  - AMNESIA [None]
  - DEPRESSION [None]
  - DIARRHOEA [None]
  - DYSPNOEA [None]
  - HEADACHE [None]
  - MIGRAINE [None]
  - PAIN [None]
  - PYREXIA [None]
  - RESTLESS LEGS SYNDROME [None]
  - SLEEP DISORDER [None]
  - VISION BLURRED [None]
  - VISUAL ACUITY REDUCED [None]
  - VOMITING [None]
